FAERS Safety Report 7720817-5 (Version None)
Quarter: 2011Q3

REPORT INFORMATION
  Report Type: 
  Country: None (occurrence: None)
  Receive Date: 20110831
  Receipt Date: 20110826
  Transmission Date: 20111222
  Serious: Yes (Death, Hospitalization, Other)
  Sender: FDA-Public Use
  Company Number: US-JNJFOC-20110812703

PATIENT
  Sex: Female

DRUGS (2)
  1. DURAGESIC-100 [Suspect]
     Indication: BACK DISORDER
     Route: 062
     Dates: end: 20050101
  2. COUMADIN [Suspect]
     Indication: CARDIAC DISORDER
     Route: 065
     Dates: start: 20080101

REACTIONS (5)
  - THROMBOSIS [None]
  - HEAD INJURY [None]
  - CARDIAC DISORDER [None]
  - FALL [None]
  - PRODUCT QUALITY ISSUE [None]
